FAERS Safety Report 8427901-1 (Version None)
Quarter: 2012Q2

REPORT INFORMATION
  Report Type: 
  Country: None (occurrence: None)
  Receive Date: 20120611
  Receipt Date: 20120606
  Transmission Date: 20120825
  Serious: Yes (Death, Hospitalization, Other)
  Sender: FDA-Public Use
  Company Number: GB-ROCHE-1060628

PATIENT
  Sex: Female

DRUGS (1)
  1. LUCENTIS [Suspect]
     Indication: AGE-RELATED MACULAR DEGENERATION
     Route: 050
     Dates: start: 20081109, end: 20090306

REACTIONS (4)
  - MYOCARDIAL INFARCTION [None]
  - FALL [None]
  - UPPER LIMB FRACTURE [None]
  - ANGINA UNSTABLE [None]
